FAERS Safety Report 16483412 (Version 1)
Quarter: 2019Q2

REPORT INFORMATION
  Report Type: Spontaneous
  Country: US (occurrence: US)
  Receive Date: 20190515
  Receipt Date: 20190515
  Transmission Date: 20190711
  Serious: Yes (Other)
  Sender: FDA-Public Use
  Company Number: None

PATIENT
  Age: 67 Year
  Sex: Female
  Weight: 77.11 kg

DRUGS (13)
  1. ARMOUR THYROID [Concomitant]
     Active Substance: THYROID, PORCINE
  2. VITAMIN C [Concomitant]
     Active Substance: ASCORBIC ACID
  3. MAGNESIUM [Concomitant]
     Active Substance: MAGNESIUM
  4. CALCIUM [Concomitant]
     Active Substance: CALCIUM
  5. ALENDRONATE SODIUM 70 MG TAB [Suspect]
     Active Substance: ALENDRONATE SODIUM
     Indication: OSTEOPOROSIS
     Dosage: ?          QUANTITY:12 DF DOSAGE FORM;?
     Route: 048
     Dates: start: 20190501, end: 20190501
  6. MULTI VIT [Concomitant]
     Active Substance: VITAMINS
  7. NORDIC NATURALS ULTIMATE OMEGA 2X FISH OIL [Concomitant]
  8. INTEGRATIVE PANPLEX 2-PHASE [Concomitant]
  9. MEBETRICK [Concomitant]
  10. VIT B [Concomitant]
     Active Substance: VITAMIN B
  11. EYES [Concomitant]
  12. VIT D [Concomitant]
     Active Substance: VITAMIN D NOS
  13. LIPITOR [Concomitant]
     Active Substance: ATORVASTATIN CALCIUM

REACTIONS (7)
  - Muscle twitching [None]
  - Tremor [None]
  - Diarrhoea [None]
  - Pyrexia [None]
  - Nausea [None]
  - Chills [None]
  - Headache [None]

NARRATIVE: CASE EVENT DATE: 20190501
